FAERS Safety Report 9412052 (Version 1)
Quarter: 2013Q3

REPORT INFORMATION
  Report Type: Spontaneous
  Country: US (occurrence: None)
  Receive Date: 20130719
  Receipt Date: 20130719
  Transmission Date: 20140515
  Serious: Yes (Other)
  Sender: FDA-Public Use
  Company Number: None

PATIENT
  Age: 35 Year
  Sex: Male
  Weight: 81.65 kg

DRUGS (1)
  1. BUPRENORPHINE/NALOXONE [Suspect]
     Indication: DRUG DEPENDENCE
     Dosage: I, Q8 HOURS, SL
     Route: 060
     Dates: start: 20120525, end: 20130705

REACTIONS (7)
  - Nausea [None]
  - Vomiting [None]
  - Hyperhidrosis [None]
  - Myalgia [None]
  - Dizziness [None]
  - Self-medication [None]
  - Medication error [None]
